FAERS Safety Report 9380447 (Version 2)
Quarter: 2013Q3

REPORT INFORMATION
  Report Type: Spontaneous
  Country: DK (occurrence: HU)
  Receive Date: 20130702
  Receipt Date: 20130702
  Transmission Date: 20140515
  Serious: Yes (Other)
  Sender: FDA-Public Use
  Company Number: HU-FRI-1000045778

PATIENT
  Age: 66 Year
  Sex: Female
  Weight: 74 kg

DRUGS (4)
  1. ESCITALOPRAM [Suspect]
     Indication: DEPRESSION
     Dosage: 10 MG
     Route: 048
     Dates: start: 20130408
  2. TRUXAL DRAZSE [Suspect]
     Indication: SLEEP DISORDER
     Dosage: 15 MG
     Route: 048
     Dates: start: 20130408, end: 20130601
  3. TRUXAL DRAZSE [Suspect]
     Indication: ANXIETY
  4. RIVOTRIL [Concomitant]
     Indication: ANXIETY
     Dosage: 1 MG
     Route: 048
     Dates: start: 20130408

REACTIONS (3)
  - Oedema [Unknown]
  - Weight increased [Unknown]
  - Hunger [Unknown]
